FAERS Safety Report 15144915 (Version 1)
Quarter: 2018Q3

REPORT INFORMATION
  Report Type: Spontaneous
  Country: US (occurrence: US)
  Receive Date: 20180713
  Receipt Date: 20180713
  Transmission Date: 20181010
  Serious: No
  Sender: FDA-Public Use
  Company Number: US-CHILTERN-US-2018-000027

PATIENT
  Age: 60 Year
  Sex: Female

DRUGS (2)
  1. TRAVATAN [Concomitant]
     Active Substance: TRAVOPROST
     Indication: OPEN ANGLE GLAUCOMA
     Dosage: UNK, UNK, UNK
     Route: 047
  2. RHOPRESSA [Suspect]
     Active Substance: NETARSUDIL MESYLATE
     Indication: OPEN ANGLE GLAUCOMA
     Dosage: 1 GTT, QD
     Route: 047

REACTIONS (4)
  - Eye pruritus [Unknown]
  - Eye irritation [None]
  - Intraocular pressure increased [Unknown]
  - Conjunctival hyperaemia [Unknown]
